FAERS Safety Report 5429085-0 (Version None)
Quarter: 2007Q3

REPORT INFORMATION
  Report Type: 
  Country: None (occurrence: None)
  Receive Date: 20070824
  Receipt Date: 20070813
  Transmission Date: 20080115
  Serious: Yes (Death, Hospitalization)
  Sender: FDA-Public Use
  Company Number: 100#08#2007-02837

PATIENT
  Age: 63 Year
  Sex: Male

DRUGS (2)
  1. DICLOFENAC  (DICLOFENAC) (TABLETS) (DICLOFENAC) [Suspect]
     Indication: POLYARTHRITIS
     Dosage: 300 MG (100 MG, THREE TIMES A DAY) (100 MG, VERY REGULARLY)
  2. OMEPRAZOLE (OMEPRAZOLE)(TABLETS) (OMEPRAZOLE) [Concomitant]

REACTIONS (9)
  - CACHEXIA [None]
  - COLITIS ULCERATIVE [None]
  - COLONIC STENOSIS [None]
  - ILEAL STENOSIS [None]
  - NORMOCHROMIC NORMOCYTIC ANAEMIA [None]
  - RENAL FAILURE [None]
  - RESPIRATORY DISORDER [None]
  - THROMBOCYTHAEMIA [None]
  - WEIGHT DECREASED [None]
